FAERS Safety Report 9969935 (Version 1)
Quarter: 2014Q1

REPORT INFORMATION
  Report Type: Spontaneous
  Country: US (occurrence: US)
  Receive Date: 20140306
  Receipt Date: 20140306
  Transmission Date: 20141002
  Serious: No
  Sender: FDA-Public Use
  Company Number: US-SANOFI-AVENTIS-2013SA077944

PATIENT
  Age: 65 Year
  Sex: Male

DRUGS (1)
  1. GAVISCON [Suspect]
     Indication: DYSPEPSIA
     Dosage: TAKEN FROM- 1 YEARS
     Route: 065

REACTIONS (2)
  - Blunted affect [Unknown]
  - Drug ineffective [Unknown]
